FAERS Safety Report 25866877 (Version 2)
Quarter: 2025Q4

REPORT INFORMATION
  Report Type: Spontaneous
  Country: US (occurrence: US)
  Receive Date: 20251001
  Receipt Date: 20251003
  Transmission Date: 20260118
  Serious: Yes (Hospitalization, Other)
  Sender: TEVA
  Company Number: US-TEVA-VS-3374490

PATIENT
  Age: 64 Year
  Sex: Female

DRUGS (1)
  1. TERIPARATIDE [Suspect]
     Active Substance: TERIPARATIDE
     Indication: Product used for unknown indication
     Dosage: STRENGTH: 560 MCG/2.24 ML, USED THE PRODUCT TILL 10 DAYS
     Route: 065
     Dates: start: 202509, end: 202509

REACTIONS (12)
  - Hospitalisation [Unknown]
  - Injection site haemorrhage [Unknown]
  - Chest discomfort [Recovered/Resolved]
  - Injection site bruising [Unknown]
  - Product after taste [Unknown]
  - Abdominal distension [Unknown]
  - Disorientation [Unknown]
  - Incorrect dose administered [Unknown]
  - Abdominal pain upper [Not Recovered/Not Resolved]
  - Dizziness [Recovered/Resolved]
  - Device malfunction [Unknown]
  - Device issue [Unknown]

NARRATIVE: CASE EVENT DATE: 20250901
